FAERS Safety Report 6770906-7 (Version None)
Quarter: 2010Q2

REPORT INFORMATION
  Report Type: 
  Country: None (occurrence: None)
  Receive Date: 20100616
  Receipt Date: 20100607
  Transmission Date: 20101027
  Serious: Yes (Hospitalization)
  Sender: FDA-Public Use
  Company Number: US-BIOGENIDEC-2010BI016666

PATIENT
  Age: 60 Year
  Sex: Female

DRUGS (7)
  1. TYSABRI [Suspect]
     Indication: MULTIPLE SCLEROSIS
     Route: 042
     Dates: start: 20070125
  2. BACLOFEN [Concomitant]
  3. PAXIL [Concomitant]
  4. LUNESTA [Concomitant]
  5. MACROBID [Concomitant]
  6. ADDERALL 10 [Concomitant]
  7. LEVAQUIN [Concomitant]

REACTIONS (4)
  - EXCORIATION [None]
  - HIP FRACTURE [None]
  - LOSS OF CONSCIOUSNESS [None]
  - MULTIPLE SCLEROSIS [None]
